FAERS Safety Report 23921740 (Version 1)
Quarter: 2024Q2

REPORT INFORMATION
  Report Type: Spontaneous
  Country: RU (occurrence: RU)
  Receive Date: 20240530
  Receipt Date: 20240530
  Transmission Date: 20240716
  Serious: Yes (Other)
  Sender: FDA-Public Use
  Company Number: RU-STRIDES ARCOLAB LIMITED-2024SP006273

PATIENT
  Sex: Female

DRUGS (12)
  1. AMOXICILLIN [Suspect]
     Active Substance: AMOXICILLIN
     Indication: Helicobacter duodenal ulcer
     Dosage: UNK
     Route: 065
     Dates: start: 2000, end: 2000
  2. AMOXICILLIN [Suspect]
     Active Substance: AMOXICILLIN
     Dosage: UNK
     Route: 065
     Dates: start: 2016, end: 2016
  3. AMOXICILLIN [Suspect]
     Active Substance: AMOXICILLIN
     Dosage: 1000 MILLIGRAM, BID (FOR 14 DAYS) (THERAPY COMPLETED)
     Route: 065
     Dates: start: 201905
  4. METRONIDAZOLE [Suspect]
     Active Substance: METRONIDAZOLE
     Indication: Helicobacter duodenal ulcer
     Dosage: UNK
     Route: 065
     Dates: start: 2000, end: 2000
  5. ESOMEPRAZOLE [Suspect]
     Active Substance: ESOMEPRAZOLE
     Indication: Helicobacter duodenal ulcer
     Dosage: 40 MILLIGRAM, BID (FOR 14 DAYS) (THERAPY COMPLETED)
     Route: 065
     Dates: start: 201905
  6. BISMUTH SUBCITRATE [Suspect]
     Active Substance: BISMUTH SUBCITRATE
     Indication: Helicobacter duodenal ulcer
     Dosage: UNK
     Route: 065
     Dates: start: 2000, end: 2000
  7. BISMUTH SUBCITRATE [Suspect]
     Active Substance: BISMUTH SUBCITRATE
     Dosage: UNK
     Route: 065
     Dates: start: 2016, end: 2016
  8. BISMUTH SUBCITRATE [Suspect]
     Active Substance: BISMUTH SUBCITRATE
     Dosage: 240 MILLIGRAM, BID (FOR 14 DAYS) (THERAPY COMPLETED)
     Route: 065
     Dates: start: 201905
  9. LEVOFLOXACIN [Suspect]
     Active Substance: LEVOFLOXACIN
     Indication: Helicobacter duodenal ulcer
     Dosage: 500 MILLIGRAM, BID (FOR 14 DAYS) (THERAPY COMPLETED)
     Route: 065
     Dates: start: 201905
  10. OMEPRAZOLE [Concomitant]
     Active Substance: DONEPEZIL HYDROCHLORIDE\OMEPRAZOLE\OMEPRAZOLE MAGNESIUM
     Indication: Helicobacter duodenal ulcer
     Dosage: UNK
     Route: 065
     Dates: start: 2000, end: 2000
  11. OMEPRAZOLE [Concomitant]
     Active Substance: DONEPEZIL HYDROCHLORIDE\OMEPRAZOLE\OMEPRAZOLE MAGNESIUM
     Dosage: UNK
     Route: 065
     Dates: start: 2016, end: 2016
  12. JOSAMYCIN [Concomitant]
     Active Substance: JOSAMYCIN
     Indication: Helicobacter duodenal ulcer
     Dosage: UNK
     Route: 065
     Dates: start: 2016, end: 2016

REACTIONS (2)
  - Tendonitis [Recovered/Resolved]
  - Off label use [Unknown]

NARRATIVE: CASE EVENT DATE: 20000101
